FAERS Safety Report 8564457-7 (Version None)
Quarter: 2012Q3

REPORT INFORMATION
  Report Type: 
  Country: None (occurrence: None)
  Receive Date: 20120803
  Receipt Date: 20120730
  Transmission Date: 20120928
  Serious: Yes (Other)
  Sender: FDA-Public Use
  Company Number: US-JNJFOC-20120800894

PATIENT
  Sex: Female

DRUGS (2)
  1. TYLENOL (CAPLET) [Suspect]
     Indication: PRODUCT USED FOR UNKNOWN INDICATION
     Route: 048
     Dates: start: 20100101
  2. TYLENOL (CAPLET) [Suspect]
     Route: 048

REACTIONS (1)
  - HEPATIC FAILURE [None]
